FAERS Safety Report 11394670 (Version 1)
Quarter: 2015Q3

REPORT INFORMATION
  Report Type: Spontaneous
  Country: GB (occurrence: GB)
  Receive Date: 20150819
  Receipt Date: 20150819
  Transmission Date: 20151125
  Serious: Yes (Life-Threatening, Hospitalization)
  Sender: FDA-Public Use
  Company Number: GB-ASTRAZENECA-2015SE77763

PATIENT
  Age: 80 Year
  Sex: Male
  Weight: 107 kg

DRUGS (1)
  1. SYMBICORT [Suspect]
     Active Substance: BUDESONIDE\FORMOTEROL FUMARATE DIHYDRATE
     Indication: CHRONIC OBSTRUCTIVE PULMONARY DISEASE
     Dosage: 2 DF BID
     Route: 055
     Dates: start: 20150727, end: 20150727

REACTIONS (4)
  - Anaphylactic reaction [Unknown]
  - Cardiac arrest [Unknown]
  - Angioedema [Unknown]
  - Brain injury [Unknown]
